FAERS Safety Report 9527855 (Version 1)
Quarter: 2013Q3

REPORT INFORMATION
  Report Type: Spontaneous
  Country: JP (occurrence: None)
  Receive Date: 20130913
  Receipt Date: 20130913
  Transmission Date: 20140515
  Serious: Yes (Hospitalization)
  Sender: FDA-Public Use
  Company Number: JP-012972

PATIENT
  Age: 71 Year
  Sex: Male

DRUGS (3)
  1. GONAX [Suspect]
     Indication: PROSTATE CANCER METASTATIC
     Route: 058
     Dates: start: 20130801, end: 20130801
  2. DEXAMETHASONE [Concomitant]
  3. LEUPLIN [Concomitant]

REACTIONS (2)
  - Injection site abscess [None]
  - Injection site induration [None]
